FAERS Safety Report 7462805-2 (Version None)
Quarter: 2011Q2

REPORT INFORMATION
  Report Type: 
  Country: None (occurrence: None)
  Receive Date: 20110506
  Receipt Date: 20110428
  Transmission Date: 20111010
  Serious: Yes (Other)
  Sender: FDA-Public Use
  Company Number: US-AMGEN-USASP2011013711

PATIENT
  Age: 70 Year
  Sex: Female

DRUGS (3)
  1. PREDNISONE [Concomitant]
  2. ENBREL [Suspect]
     Indication: ARTHRITIS
     Dosage: UNK
     Route: 058
     Dates: start: 20061220, end: 20070815
  3. PLAQUENIL [Concomitant]

REACTIONS (7)
  - MOBILITY DECREASED [None]
  - INJECTION SITE RASH [None]
  - DYSMENORRHOEA [None]
  - ARTHRALGIA [None]
  - BACK PAIN [None]
  - SOMNOLENCE [None]
  - THYROID CANCER [None]
